FAERS Safety Report 7248870-6 (Version None)
Quarter: 2011Q1

REPORT INFORMATION
  Report Type: 
  Country: None (occurrence: None)
  Receive Date: 20110128
  Receipt Date: 20100624
  Transmission Date: 20110831
  Serious: Yes (Life-Threatening, Hospitalization, Other)
  Sender: FDA-Public Use
  Company Number: US-BAYER-200938480NA

PATIENT
  Sex: Female
  Weight: 86.168 kg

DRUGS (8)
  1. ADVIL [Concomitant]
  2. FLUOXETINE [Concomitant]
     Indication: STRESS
  3. ALEVE [Concomitant]
  4. YASMIN [Suspect]
     Indication: CONTRACEPTION
     Dosage: 1 DF (DAILY DOSE), QD, ORAL
     Route: 048
     Dates: start: 20060522
  5. YAZ [Suspect]
  6. IMITREX [Concomitant]
     Indication: MIGRAINE
     Dosage: UNK
     Dates: start: 20020601, end: 20020601
  7. ASPIRIN [Concomitant]
  8. FLUOXETINE [Concomitant]
     Indication: HORMONE LEVEL ABNORMAL
     Dosage: 20 MG, UNK

REACTIONS (4)
  - DYSPNOEA [None]
  - CHEST PAIN [None]
  - ADENOCARCINOMA OF THE CERVIX [None]
  - PULMONARY EMBOLISM [None]
